FAERS Safety Report 10748279 (Version 9)
Quarter: 2017Q1

REPORT INFORMATION
  Report Type: Report from Study
  Country: US (occurrence: US)
  Receive Date: 20150129
  Receipt Date: 20170323
  Transmission Date: 20170428
  Serious: Yes (Hospitalization, Other)
  Sender: FDA-Public Use
  Company Number: US-SA-2013SA103952

PATIENT
  Age: 63 Year
  Sex: Female

DRUGS (7)
  1. PROVIGIL [Concomitant]
     Active Substance: MODAFINIL
  2. AUBAGIO [Suspect]
     Active Substance: TERIFLUNOMIDE
     Indication: MULTIPLE SCLEROSIS
     Route: 048
     Dates: start: 20130925, end: 20131018
  3. AUBAGIO [Suspect]
     Active Substance: TERIFLUNOMIDE
     Indication: MULTIPLE SCLEROSIS
     Route: 048
     Dates: start: 20141229, end: 201601
  4. AUBAGIO [Suspect]
     Active Substance: TERIFLUNOMIDE
     Indication: MULTIPLE SCLEROSIS
     Route: 048
     Dates: start: 201602
  5. AUBAGIO [Suspect]
     Active Substance: TERIFLUNOMIDE
     Indication: MULTIPLE SCLEROSIS
     Route: 048
     Dates: start: 201602
  6. AUBAGIO [Suspect]
     Active Substance: TERIFLUNOMIDE
     Indication: MULTIPLE SCLEROSIS
     Dosage: DOSE AND DAILY DOSE: 7 AND 14 MG
     Route: 048
     Dates: start: 20131201, end: 20140701
  7. AUBAGIO [Suspect]
     Active Substance: TERIFLUNOMIDE
     Indication: MULTIPLE SCLEROSIS
     Route: 048
     Dates: start: 20141229, end: 201601

REACTIONS (30)
  - Coordination abnormal [Unknown]
  - Headache [Unknown]
  - Spinal column stenosis [Unknown]
  - Visual acuity reduced [Not Recovered/Not Resolved]
  - Arthritis [Unknown]
  - Paraesthesia [Unknown]
  - Blood pressure increased [Recovering/Resolving]
  - Feeling abnormal [Unknown]
  - Fatigue [Unknown]
  - Skin disorder [Unknown]
  - Carpal tunnel syndrome [Recovering/Resolving]
  - Sleep apnoea syndrome [Unknown]
  - Urinary tract infection [Unknown]
  - Cystitis [Unknown]
  - Peripheral artery aneurysm [Not Recovered/Not Resolved]
  - Peripheral artery occlusion [Unknown]
  - Nerve compression [Unknown]
  - Swelling [Unknown]
  - Hypoaesthesia [Unknown]
  - Blood cholesterol increased [Unknown]
  - Surgery [Unknown]
  - Pain in extremity [Unknown]
  - Cough [Unknown]
  - Aortic aneurysm [Unknown]
  - Torticollis [Unknown]
  - Affect lability [Not Recovered/Not Resolved]
  - Impaired healing [Not Recovered/Not Resolved]
  - Balance disorder [Unknown]
  - Depression [Unknown]
  - Hypersensitivity [Unknown]

NARRATIVE: CASE EVENT DATE: 2014
